FAERS Safety Report 5181566-3 (Version None)
Quarter: 2006Q4

REPORT INFORMATION
  Report Type: 
  Country: None (occurrence: None)
  Receive Date: 20061220
  Receipt Date: 20060203
  Transmission Date: 20070319
  Serious: No
  Sender: FDA-Public Use
  Company Number: US-GLAXOSMITHKLINE-A0592261A

PATIENT
  Age: 58 Year

DRUGS (1)
  1. COMMIT [Suspect]
     Dates: start: 20060203, end: 20060203

REACTIONS (3)
  - GLOSSODYNIA [None]
  - NASAL DISCOMFORT [None]
  - ORAL DISCOMFORT [None]
